FAERS Safety Report 6754581-3 (Version None)
Quarter: 2010Q2

REPORT INFORMATION
  Report Type: 
  Country: None (occurrence: None)
  Receive Date: 20100603
  Receipt Date: 20100526
  Transmission Date: 20101027
  Serious: Yes (Hospitalization)
  Sender: FDA-Public Use
  Company Number: US-B.I. PHARMACEUTICALS,INC./RIDGEFIELD-2010-BP-05906BP

PATIENT
  Sex: Female

DRUGS (6)
  1. DULCOLAX [Suspect]
     Indication: COLONOSCOPY
     Dates: start: 20100422
  2. COREG [Suspect]
     Indication: HYPERTENSION
     Dosage: 40 MG
     Route: 048
     Dates: start: 20081101
  3. POLYETHYLENE GLYCOL [Suspect]
     Indication: COLONOSCOPY
     Dates: start: 20100422
  4. IRBESARTAN [Concomitant]
  5. CITALOPRAM HYDROBROMIDE [Concomitant]
  6. ASPIRIN [Concomitant]

REACTIONS (3)
  - BLOOD PRESSURE INCREASED [None]
  - DIZZINESS [None]
  - HYPONATRAEMIA [None]
